FAERS Safety Report 11763022 (Version 1)
Quarter: 2015Q4

REPORT INFORMATION
  Report Type: Spontaneous
  Country: US (occurrence: US)
  Receive Date: 20151120
  Receipt Date: 20151120
  Transmission Date: 20160304
  Serious: No
  Sender: FDA-Public Use
  Company Number: US-ELI_LILLY_AND_COMPANY-US201302007526

PATIENT
  Sex: Female
  Weight: 43.1 kg

DRUGS (3)
  1. FORTEO [Suspect]
     Active Substance: TERIPARATIDE
     Indication: OSTEOPOROSIS
     Dosage: 20 UG, QD
     Route: 065
     Dates: start: 20110111, end: 20120118
  2. VITAMIN C [Concomitant]
     Active Substance: ASCORBIC ACID
  3. VITAMIN D [Concomitant]
     Active Substance: CHOLECALCIFEROL

REACTIONS (6)
  - Infrequent bowel movements [Not Recovered/Not Resolved]
  - Abdominal distension [Unknown]
  - Sensory disturbance [Unknown]
  - Blood test abnormal [Unknown]
  - Faeces discoloured [Not Recovered/Not Resolved]
  - Burning sensation [Unknown]
